FAERS Safety Report 9496731 (Version 3)
Quarter: 2013Q3

REPORT INFORMATION
  Report Type: Report from Study
  Country: CA (occurrence: CA)
  Receive Date: 20130904
  Receipt Date: 20130906
  Transmission Date: 20140515
  Serious: Yes (Hospitalization)
  Sender: FDA-Public Use
  Company Number: CA-ROCHE-1146152

PATIENT
  Age: 54 Year
  Sex: Female
  Weight: 88.9 kg

DRUGS (24)
  1. RITUXAN [Suspect]
     Indication: RHEUMATOID ARTHRITIS
     Dosage: LAST DOSE : 04/JUL/2013
     Route: 042
     Dates: start: 20090911
  2. RITUXAN [Suspect]
     Route: 042
     Dates: start: 20091109
  3. RITUXAN [Suspect]
     Route: 042
     Dates: start: 20130704
  4. TORADOL [Suspect]
     Indication: PRODUCT USED FOR UNKNOWN INDICATION
     Route: 065
  5. ADALAT [Concomitant]
  6. FOLIC ACID [Concomitant]
  7. LORAZEPAM [Concomitant]
  8. CLONIDINE [Concomitant]
  9. METHOTREXATE [Concomitant]
  10. ELTROXIN [Concomitant]
  11. INDAPAMIDE [Concomitant]
  12. LEFLUNOMIDE [Concomitant]
  13. NORTRIPTYLINE [Concomitant]
  14. LISINOPRIL [Concomitant]
  15. CYMBALTA [Concomitant]
  16. NAPRELAN [Concomitant]
  17. PANTOPRAZOLE [Concomitant]
  18. ACETYLSALICYLIC ACID [Concomitant]
  19. CITALOPRAM [Concomitant]
  20. METFORMIN [Concomitant]
     Route: 065
  21. DIPHENHYDRAMINE HCL [Concomitant]
     Route: 048
     Dates: start: 20091109
  22. ACETAMINOPHEN [Concomitant]
     Route: 048
     Dates: start: 20091109
  23. METHYLPREDNISOLONE [Concomitant]
     Route: 042
     Dates: start: 20091109
  24. METHYLPREDNISOLONE [Concomitant]
     Route: 065
     Dates: start: 20100727

REACTIONS (7)
  - Colitis [Recovering/Resolving]
  - Arthralgia [Not Recovered/Not Resolved]
  - Sinusitis [Not Recovered/Not Resolved]
  - Urinary tract infection [Not Recovered/Not Resolved]
  - Nasopharyngitis [Not Recovered/Not Resolved]
  - Road traffic accident [Unknown]
  - Malaise [Unknown]
